FAERS Safety Report 14775563 (Version 1)
Quarter: 2018Q2

REPORT INFORMATION
  Report Type: Spontaneous
  Country: TW (occurrence: TW)
  Receive Date: 20180418
  Receipt Date: 20180418
  Transmission Date: 20180711
  Serious: Yes (Death, Hospitalization)
  Sender: FDA-Public Use
  Company Number: TW-BAUSCH-BL-2018-010820

PATIENT
  Age: 54 Year
  Sex: Female

DRUGS (5)
  1. LEUCOVORIN. [Suspect]
     Active Substance: LEUCOVORIN
     Indication: PRODUCT USED FOR UNKNOWN INDICATION
     Dosage: EVERY 4 WEEKS
     Route: 065
  2. FLUOROURACIL. [Suspect]
     Active Substance: FLUOROURACIL
     Indication: PRODUCT USED FOR UNKNOWN INDICATION
     Dosage: EVERY 4 WEEKS
     Route: 065
  3. FRAXIPARINE [Concomitant]
     Active Substance: NADROPARIN CALCIUM
     Indication: PRODUCT USED FOR UNKNOWN INDICATION
  4. VINORELBINE [Suspect]
     Active Substance: VINORELBINE\VINORELBINE TARTRATE
     Indication: PRODUCT USED FOR UNKNOWN INDICATION
     Dosage: EVERY 4 WEEKS
     Route: 065
  5. CISPLATIN. [Suspect]
     Active Substance: CISPLATIN
     Indication: PRODUCT USED FOR UNKNOWN INDICATION
     Dosage: EVERY 4 WEEKS
     Route: 065

REACTIONS (4)
  - Osteonecrosis [Unknown]
  - Paradoxical embolism [Unknown]
  - Osteonecrosis [Unknown]
  - Coagulopathy [Fatal]

NARRATIVE: CASE EVENT DATE: 2012
